FAERS Safety Report 5057456-3 (Version None)
Quarter: 2006Q3

REPORT INFORMATION
  Report Type: 
  Country: None (occurrence: None)
  Receive Date: 20060721
  Receipt Date: 20051011
  Transmission Date: 20061208
  Serious: No
  Sender: FDA-Public Use
  Company Number: US-GLAXOSMITHKLINE-A0577828A

PATIENT
  Age: 69 Year
  Sex: Female

DRUGS (6)
  1. AVANDIA [Suspect]
     Dosage: 8MG PER DAY
     Route: 048
  2. FEMHRT [Concomitant]
  3. ASPIRIN [Concomitant]
  4. CITRACAL [Concomitant]
  5. VITAMINS [Concomitant]
  6. BENICAR [Concomitant]

REACTIONS (4)
  - ARTHRALGIA [None]
  - DIZZINESS [None]
  - DRUG INEFFECTIVE [None]
  - JOINT SWELLING [None]
